FAERS Safety Report 11377955 (Version 1)
Quarter: 2015Q3

REPORT INFORMATION
  Report Type: Spontaneous
  Country: US (occurrence: US)
  Receive Date: 20150811
  Receipt Date: 20150811
  Transmission Date: 20151125
  Serious: No
  Sender: FDA-Public Use
  Company Number: US-ELI_LILLY_AND_COMPANY-US200912000083

PATIENT
  Sex: Female

DRUGS (1)
  1. HUMULIN 70/30 [Suspect]
     Active Substance: INSULIN HUMAN

REACTIONS (4)
  - Feeling abnormal [Not Recovered/Not Resolved]
  - Drug dose omission [Unknown]
  - Arthralgia [Unknown]
  - Incorrect product storage [Unknown]

NARRATIVE: CASE EVENT DATE: 200911
